FAERS Safety Report 8557488-4 (Version None)
Quarter: 2012Q3

REPORT INFORMATION
  Report Type: 
  Country: None (occurrence: None)
  Receive Date: 20120720
  Receipt Date: 20120709
  Transmission Date: 20120928
  Serious: Yes (Hospitalization)
  Sender: FDA-Public Use
  Company Number: 1345992

PATIENT
  Age: 41 Year
  Sex: Female

DRUGS (3)
  1. FENTANYL CITRATE [Suspect]
     Indication: ANALGESIC THERAPY
     Dosage: 100 MCG/HOUR, UNK, INTRAVENOUS DRIP
     Route: 041
  2. FENTANYL CITRATE [Suspect]
     Indication: SEDATION
     Dosage: 100 MCG/HOUR, UNK, INTRAVENOUS DRIP
     Route: 041
  3. PROPOFOL [Concomitant]

REACTIONS (9)
  - MENTAL STATUS CHANGES [None]
  - BACTERAEMIA [None]
  - AGITATION [None]
  - HYPERTONIA [None]
  - PNEUMOTHORAX [None]
  - PNEUMONIA ASPIRATION [None]
  - SEROTONIN SYNDROME [None]
  - CLONUS [None]
  - HYPERREFLEXIA [None]
